FAERS Safety Report 8834449 (Version 1)
Quarter: 2012Q4

REPORT INFORMATION
  Report Type: 
  Country: DE (occurrence: DE)
  Receive Date: 20121010
  Receipt Date: 20121010
  Transmission Date: 20130627
  Serious: Yes (Hospitalization)
  Sender: FDA-Public Use
  Company Number: PHHO2012DE014567

PATIENT
  Age: 71 Year
  Sex: Female
  Weight: 77.3 kg

DRUGS (4)
  1. EVEROLIMUS [Suspect]
     Dosage: 10 mg, UNK
     Route: 048
     Dates: start: 20120924, end: 20121005
  2. EXEMESTANE [Suspect]
     Indication: BREAST CANCER METASTATIC
     Dosage: 25 mg, UNK
     Route: 048
     Dates: start: 20120924, end: 20121005
  3. LISIHEXAL [Concomitant]
     Indication: HYPERTENSION
     Dosage: 10 mg, UNK
  4. TRYASOL [Concomitant]
     Indication: COUGH
     Dosage: 20 drops
     Dates: start: 20120927, end: 20121006

REACTIONS (1)
  - General physical condition abnormal [Not Recovered/Not Resolved]
